FAERS Safety Report 5250105-0 (Version None)
Quarter: 2007Q1

REPORT INFORMATION
  Report Type: 
  Country: None (occurrence: None)
  Receive Date: 20070228
  Receipt Date: 20060221
  Transmission Date: 20070707
  Serious: No
  Sender: FDA-Public Use
  Company Number: US-GLAXOSMITHKLINE-A0592512A

PATIENT
  Age: 34 Year
  Sex: Female
  Weight: 68.6 kg

DRUGS (4)
  1. LAMICTAL [Suspect]
     Indication: BIPOLAR II DISORDER
     Dosage: 12.5MG TWICE PER DAY
     Route: 048
     Dates: start: 20060119, end: 20060201
  2. WELLBUTRIN XL [Concomitant]
     Indication: DEPRESSION
     Dosage: 300MG IN THE MORNING
     Route: 048
     Dates: start: 20040101
  3. CLONAZEPAM [Concomitant]
     Dosage: .5MG TWICE PER DAY
     Route: 048
     Dates: start: 20040101
  4. GABAPENTIN [Concomitant]
     Route: 048

REACTIONS (7)
  - ARTHRALGIA [None]
  - ASTHENIA [None]
  - INFLUENZA LIKE ILLNESS [None]
  - NAUSEA [None]
  - PAIN [None]
  - RASH [None]
  - SINUS CONGESTION [None]
